FAERS Safety Report 11431027 (Version 4)
Quarter: 2016Q1

REPORT INFORMATION
  Report Type: Spontaneous
  Country: US (occurrence: US)
  Receive Date: 20150828
  Receipt Date: 20160128
  Transmission Date: 20160525
  Serious: Yes (Other)
  Sender: FDA-Public Use
  Company Number: US-PFIZER INC-2015235034

PATIENT
  Age: 53 Year
  Sex: Female

DRUGS (10)
  1. TRAMADOL HCL [Suspect]
     Active Substance: TRAMADOL HYDROCHLORIDE
     Indication: BLADDER PAIN
  2. TRAMADOL HCL [Suspect]
     Active Substance: TRAMADOL HYDROCHLORIDE
     Indication: BACK PAIN
     Dosage: BETWEEN 25-50 MG, EVERY 3-8 HRS
     Dates: start: 20030501, end: 20150301
  3. ESCITALOPRAM OXALATE. [Concomitant]
     Active Substance: ESCITALOPRAM OXALATE
     Dosage: UNK
     Dates: start: 2006
  4. EFFEXOR [Suspect]
     Active Substance: VENLAFAXINE HYDROCHLORIDE
     Indication: PAIN
     Dosage: 5 MG, DAILY
     Dates: start: 20090610, end: 20090710
  5. EFFEXOR [Suspect]
     Active Substance: VENLAFAXINE HYDROCHLORIDE
     Indication: BLADDER PAIN
  6. TRAMADOL HCL [Suspect]
     Active Substance: TRAMADOL HYDROCHLORIDE
     Indication: PAIN
     Dosage: 40 MG, DAILY
  7. SERTRALINE HYDROCHLORIDE. [Concomitant]
     Active Substance: SERTRALINE HYDROCHLORIDE
     Dosage: UNK
     Dates: start: 2005, end: 2005
  8. TRAMADOL HCL [Suspect]
     Active Substance: TRAMADOL HYDROCHLORIDE
     Indication: GASTRIC ULCER
     Dosage: 50 MG, 2X/DAY
     Dates: start: 20151215
  9. TRAMADOL HCL [Suspect]
     Active Substance: TRAMADOL HYDROCHLORIDE
     Indication: NECK PAIN
  10. EFFEXOR [Suspect]
     Active Substance: VENLAFAXINE HYDROCHLORIDE
     Indication: DEPRESSION
     Dosage: 5 MG (HALF 10 MG), DAILY
     Dates: start: 200801, end: 200802

REACTIONS (17)
  - Dependence [Not Recovered/Not Resolved]
  - Paraesthesia [Recovered/Resolved]
  - Nervousness [Recovered/Resolved]
  - Fat tissue increased [Recovered/Resolved]
  - Feeling abnormal [Recovered/Resolved]
  - Asthenia [Recovered/Resolved]
  - Disturbance in attention [Recovered/Resolved]
  - Drug withdrawal syndrome [Recovered/Resolved]
  - Bladder disorder [Recovered/Resolved]
  - Decreased appetite [Unknown]
  - Back pain [Recovered/Resolved]
  - Anxiety [Recovered/Resolved]
  - Insomnia [Recovered/Resolved]
  - Hallucination [Recovered/Resolved]
  - Cerebral disorder [Recovered/Resolved]
  - Decreased interest [Unknown]
  - Depression [Recovered/Resolved]

NARRATIVE: CASE EVENT DATE: 2004
